FAERS Safety Report 7579638-9 (Version None)
Quarter: 2011Q2

REPORT INFORMATION
  Report Type: 
  Country: None (occurrence: None)
  Receive Date: 20110622
  Receipt Date: 20101008
  Transmission Date: 20111010
  Serious: Yes (Hospitalization, Other)
  Sender: FDA-Public Use
  Company Number: PIR#400102661

PATIENT
  Age: 21 Year
  Sex: Female

DRUGS (1)
  1. LIDOCAINE [Suspect]

REACTIONS (6)
  - MITRAL VALVE INCOMPETENCE [None]
  - HYPOTENSION [None]
  - EJECTION FRACTION DECREASED [None]
  - ACUTE MYOCARDIAL INFARCTION [None]
  - PULMONARY OEDEMA [None]
  - VENTRICULAR FIBRILLATION [None]
